FAERS Safety Report 25018355 (Version 2)
Quarter: 2025Q1

REPORT INFORMATION
  Report Type: Spontaneous
  Country: DE (occurrence: DE)
  Receive Date: 20250227
  Receipt Date: 20250318
  Transmission Date: 20250408
  Serious: Yes (Life-Threatening, Other)
  Sender: PFIZER
  Company Number: DE-TAKEDA-2025TUS019790

PATIENT
  Age: 40 Year
  Sex: Male

DRUGS (1)
  1. BRENTUXIMAB VEDOTIN [Suspect]
     Active Substance: BRENTUXIMAB VEDOTIN
     Indication: Cutaneous T-cell lymphoma
     Route: 065

REACTIONS (3)
  - Respiratory failure [Recovering/Resolving]
  - Pneumonitis [Recovering/Resolving]
  - Rash maculo-papular [Recovering/Resolving]
